FAERS Safety Report 8154455-X (Version None)
Quarter: 2012Q1

REPORT INFORMATION
  Report Type: 
  Country: None (occurrence: None)
  Receive Date: 20120221
  Receipt Date: 20120210
  Transmission Date: 20120608
  Serious: Yes (Other)
  Sender: FDA-Public Use
  Company Number: US-CELGENEUS-163-21880-11083049

PATIENT
  Sex: Female

DRUGS (10)
  1. REVLIMID [Suspect]
     Dosage: 5 MILLIGRAM
     Route: 048
     Dates: start: 20110501
  2. DIAVAN [Concomitant]
     Route: 065
  3. CALCIUM [Concomitant]
     Route: 065
  4. FISH OIL [Concomitant]
     Route: 065
  5. MULTI-VITAMINS [Concomitant]
     Route: 065
  6. ASPIRIN [Concomitant]
     Route: 065
  7. FOSAMAX [Concomitant]
     Route: 065
  8. COQ10 [Concomitant]
     Route: 065
  9. REVLIMID [Suspect]
     Dosage: 10 MILLIGRAM
     Route: 048
     Dates: start: 20110129
  10. REVLIMID [Suspect]
     Dosage: 5 MILLIGRAM
     Route: 048
     Dates: start: 20111202

REACTIONS (8)
  - PRURITUS [None]
  - PARAESTHESIA [None]
  - OSTEONECROSIS [None]
  - OEDEMA PERIPHERAL [None]
  - ARTHRITIS [None]
  - ARTHRALGIA [None]
  - MUSCLE SPASMS [None]
  - WHITE BLOOD CELL COUNT DECREASED [None]
